FAERS Safety Report 8340125-1 (Version None)
Quarter: 2012Q2

REPORT INFORMATION
  Report Type: 
  Country: None (occurrence: None)
  Receive Date: 20120507
  Receipt Date: 20120501
  Transmission Date: 20120825
  Serious: Yes (Life-Threatening, Hospitalization, Other)
  Sender: FDA-Public Use
  Company Number: IL-SANOFI-AVENTIS-2011SA078958

PATIENT
  Age: 62 Year
  Sex: Male

DRUGS (50)
  1. PLAVIX [Suspect]
     Route: 065
     Dates: start: 20110327
  2. PLAVIX [Suspect]
     Route: 065
     Dates: start: 20101222
  3. PLAVIX [Suspect]
     Route: 065
     Dates: start: 20111128
  4. RULID [Concomitant]
     Dates: start: 20110922, end: 20111010
  5. BETA BLOCKING AGENTS [Concomitant]
     Dosage: FIRST REPORTED ON 04 JULY 2011
     Dates: start: 20110327
  6. ALDOSTERONE [Concomitant]
     Dosage: FIRST REPORTED ON 27 MARCH 2011
     Dates: start: 20110704
  7. PLAVIX [Suspect]
     Route: 065
     Dates: end: 20110704
  8. SOLU-MEDROL [Concomitant]
     Dosage: THERAPY END DATE: 10 FEB 2012
     Dates: start: 20120208, end: 20120210
  9. SIMVASTATIN [Concomitant]
     Dosage: FIRST REPORTED ON 22 DECEMBER 2010
     Dates: end: 20110925
  10. LIPITOR [Concomitant]
     Dates: start: 20110926
  11. ANTITHROMBOTIC AGENTS [Concomitant]
     Dosage: FIRST REPORTED ON22 DEC 2010
     Dates: start: 20110327
  12. DIURETICS [Concomitant]
     Dosage: FIRST REPORTED ON 22 DECEMBER2010
     Dates: start: 20101222
  13. ALDOSTERONE [Concomitant]
     Dosage: FIRST REPORTED ON 04 JULY 2011
     Dates: start: 20110327
  14. HMG COA REDUCTASE INHIBITORS [Concomitant]
     Dosage: FIRST REPORTED ON 22 DECEMBER 2010
     Dates: start: 20101222
  15. HMG COA REDUCTASE INHIBITORS [Concomitant]
     Dates: start: 20110327
  16. ASPIRIN [Concomitant]
     Dates: start: 20110924
  17. AMIKACIN [Concomitant]
     Dates: start: 20111021, end: 20111023
  18. OMEPRADEX [Concomitant]
     Dates: start: 20111002
  19. RAMIPRIL [Concomitant]
  20. ALDOSTERONE [Concomitant]
     Dosage: FIRST REPORTED ON 22 DECEMBER 2010
     Dates: start: 20101222
  21. NYSTATIN [Concomitant]
     Dosage: THERAPY END DATE: 16 FEB 2012
     Dates: start: 20120209, end: 20120216
  22. ROCEPHIN [Concomitant]
     Dates: start: 20110929, end: 20111006
  23. CEFUROXIME [Concomitant]
     Dates: start: 20111007, end: 20111010
  24. SIMVASTATIN [Concomitant]
     Dosage: FIRST REPORTED ON 04 JULY 2011
     Dates: end: 20110925
  25. PLATELET AGGREGATION INHIBITORS [Concomitant]
     Dosage: FIRST REPORTED ON 04 JULY 2011
     Dates: start: 20110327
  26. LANTUS [Concomitant]
     Dosage: BEFORE RANDOMIZATION
  27. COUMADIN [Concomitant]
     Dates: end: 20110922
  28. TRAMADEX [Concomitant]
     Dates: start: 20120207, end: 20120207
  29. FERROCAL [Concomitant]
     Dates: start: 20111021
  30. BEZALIP [Concomitant]
     Dates: start: 20110926
  31. AEROVENT [Concomitant]
     Dates: start: 20110929
  32. ACE INHIBITOR NOS [Concomitant]
     Dates: start: 20110327
  33. OPTALGIN [Concomitant]
     Dosage: THERPAY END DATE: 10 FEB 2012
     Dates: start: 20120202, end: 20120210
  34. ANTITHROMBOTIC AGENTS [Concomitant]
     Dosage: FIRST REPORTED ON 04 JULY 2011
     Dates: start: 20110704
  35. DIURETICS [Concomitant]
     Dosage: FIRST REPORTED ON 04 JULY 2011
     Dates: start: 20110327
  36. ACE INHIBITOR NOS [Concomitant]
     Dosage: FIRST REPORTED ON 22 DECEMBER 2010
     Dates: start: 20111222
  37. HMG COA REDUCTASE INHIBITORS [Concomitant]
     Dates: start: 20110704
  38. BISOPROLOL FUMARATE [Concomitant]
  39. BETA BLOCKING AGENTS [Concomitant]
     Dosage: FIRST REPORTED ON 22 DECEMBER2010
     Dates: start: 20101222
  40. PLATELET AGGREGATION INHIBITORS [Concomitant]
     Dosage: FIRST REPORTED ON 27 MARCH 2011
     Dates: start: 20110704
  41. ALL OTHER THERAPEUTIC PRODUCTS [Concomitant]
     Dosage: FIRST REPORTED ON 22 DECEMBER 2010
     Dates: start: 20111222
  42. APIDRA [Concomitant]
     Dosage: BEFORE RANDOMIZATION
  43. ZINACEF /UNK/ [Concomitant]
     Dates: start: 20110923, end: 20110929
  44. CIPRODEX [Concomitant]
     Dates: start: 20111024, end: 20111102
  45. SIMVASTATIN [Concomitant]
     Dosage: FIRST REPORTED ON 27 MARCH 2011
     Dates: end: 20110925
  46. ANTITHROMBOTIC AGENTS [Concomitant]
     Dates: start: 20101222
  47. BETA BLOCKING AGENTS [Concomitant]
     Dosage: FIRST REPORTED ON 27 MARCH 2011
     Dates: start: 20110704
  48. DIURETICS [Concomitant]
     Dosage: FIRST REPORTED ON 27 MARCH 2011
     Dates: start: 20110704
  49. PLATELET AGGREGATION INHIBITORS [Concomitant]
     Dosage: FIRST REPORTED ON 22 DECEMBER2010
     Dates: start: 20101222
  50. ACE INHIBITOR NOS [Concomitant]
     Dosage: FIRST REPORTED ON 04 JULY 2011
     Dates: start: 20110704

REACTIONS (16)
  - GASTROINTESTINAL HAEMORRHAGE [None]
  - HAEMOGLOBIN DECREASED [None]
  - ANAEMIA [None]
  - HAEMOPTYSIS [None]
  - DYSPNOEA [None]
  - MYALGIA [None]
  - COUGH [None]
  - PNEUMONIA [None]
  - MELAENA [None]
  - SEPSIS [None]
  - PYREXIA [None]
  - RENAL FAILURE [None]
  - WEGENER'S GRANULOMATOSIS [None]
  - ACUTE RESPIRATORY FAILURE [None]
  - BLOOD UREA INCREASED [None]
  - CARDIAC FAILURE CONGESTIVE [None]
